FAERS Safety Report 5354056-2 (Version None)
Quarter: 2007Q2

REPORT INFORMATION
  Report Type: 
  Country: None (occurrence: None)
  Receive Date: 20070612
  Receipt Date: 20070607
  Transmission Date: 20071010
  Serious: Yes (Other)
  Sender: FDA-Public Use
  Company Number: A0654641A

PATIENT
  Sex: Male

DRUGS (9)
  1. AVANDIA [Suspect]
     Dosage: 8MG PER DAY
     Route: 048
     Dates: start: 20040101
  2. COREG [Concomitant]
  3. DEMADEX [Concomitant]
  4. LANTUS [Concomitant]
  5. HUMULIN 70/30 [Concomitant]
  6. REGULIN [Concomitant]
  7. LIPITOR [Concomitant]
  8. POTASSIUM CHLORIDE [Concomitant]
  9. ASPIRIN [Concomitant]

REACTIONS (5)
  - CARDIAC FAILURE CONGESTIVE [None]
  - CHEST DISCOMFORT [None]
  - CHEST PAIN [None]
  - JOINT SWELLING [None]
  - OEDEMA PERIPHERAL [None]
